FAERS Safety Report 23278236 (Version 2)
Quarter: 2024Q1

REPORT INFORMATION
  Report Type: Spontaneous
  Country: CA (occurrence: None)
  Receive Date: 20231208
  Receipt Date: 20240125
  Transmission Date: 20240410
  Serious: Yes (Hospitalization, Other)
  Sender: FDA-Public Use
  Company Number: 2023A278838

PATIENT
  Age: 76 Year
  Sex: Male
  Weight: 105 kg

DRUGS (18)
  1. QUETIAPINE [Suspect]
     Active Substance: QUETIAPINE
     Indication: Hallucination, visual
     Route: 048
     Dates: start: 202106
  2. QUETIAPINE [Suspect]
     Active Substance: QUETIAPINE
     Indication: Hallucination, visual
     Route: 048
     Dates: start: 202106
  3. QUETIAPINE [Suspect]
     Active Substance: QUETIAPINE
     Indication: Hallucination, visual
     Route: 048
     Dates: start: 202106
  4. QUETIAPINE [Suspect]
     Active Substance: QUETIAPINE
     Indication: Hallucination, visual
     Route: 048
     Dates: start: 202106
  5. OLANZAPINE [Suspect]
     Active Substance: OLANZAPINE
     Indication: Post-traumatic stress disorder
     Dosage: 2.5 MILLIGRAM IN 1 DAY
     Route: 048
     Dates: start: 202106, end: 202106
  6. OLANZAPINE [Suspect]
     Active Substance: OLANZAPINE
     Indication: Social problem
     Dosage: 2.5 MILLIGRAM IN 1 DAY
     Route: 048
     Dates: start: 202106, end: 202106
  7. OLANZAPINE [Suspect]
     Active Substance: OLANZAPINE
     Indication: Agitation
     Dosage: 2.5 MILLIGRAM IN 1 DAY
     Route: 048
     Dates: start: 202106, end: 202106
  8. OLANZAPINE [Suspect]
     Active Substance: OLANZAPINE
     Indication: Post-traumatic stress disorder
     Route: 048
     Dates: start: 2010
  9. OLANZAPINE [Suspect]
     Active Substance: OLANZAPINE
     Indication: Social problem
     Route: 048
     Dates: start: 2010
  10. OLANZAPINE [Suspect]
     Active Substance: OLANZAPINE
     Indication: Agitation
     Route: 048
     Dates: start: 2010
  11. CLONAZEPAM [Suspect]
     Active Substance: CLONAZEPAM
     Dosage: 0.5 MILLIGRAM IN 1 DAY,AT BEDTIME
  12. RIVASTIGMINE [Suspect]
     Active Substance: RIVASTIGMINE
     Dosage: 1.5 MG, BID
     Route: 062
     Dates: start: 202106
  13. CITALOPRAM [Suspect]
     Active Substance: CITALOPRAM HYDROBROMIDE
     Dosage: 20 MG
  14. TRAZODONE [Suspect]
     Active Substance: TRAZODONE HYDROCHLORIDE
     Dosage: 25 MILLIGRAM IN 1 DAY
  15. TRAZODONE [Suspect]
     Active Substance: TRAZODONE HYDROCHLORIDE
     Dosage: 50 MILLIGRAM IN 1 DAY
  16. TRAZODONE [Suspect]
     Active Substance: TRAZODONE HYDROCHLORIDE
     Dosage: 100 MILLIGRAM IN 1 DAY
  17. TRAZODONE [Suspect]
     Active Substance: TRAZODONE HYDROCHLORIDE
     Dosage: 50 MILLIGRAM 3 TIMES PER DAY
  18. RISPERIDONE [Suspect]
     Active Substance: RISPERIDONE
     Dosage: 0.25 MILLIGRAM TWICE DAILY

REACTIONS (2)
  - Parkinsonism [Recovered/Resolved]
  - Off label use [Unknown]

NARRATIVE: CASE EVENT DATE: 20210601
